FAERS Safety Report 24011769 (Version 2)
Quarter: 2024Q3

REPORT INFORMATION
  Report Type: Spontaneous
  Country: IT (occurrence: IT)
  Receive Date: 20240625
  Receipt Date: 20240705
  Transmission Date: 20241016
  Serious: Yes (Other)
  Sender: PURDUE
  Company Number: IT-PIRAMAL PHARMA LIMITED-2024-PPL-000441

PATIENT
  Age: 13 Year
  Sex: Female
  Weight: 30.7 kg

DRUGS (5)
  1. MORPHINE SULFATE [Suspect]
     Active Substance: MORPHINE SULFATE
     Indication: Product used for unknown indication
     Dosage: 2 MILLIGRAM PER MILLILITRE
     Route: 042
  2. KETAMINE [Suspect]
     Active Substance: KETAMINE
     Indication: Product used for unknown indication
     Dosage: 01 MILLIGRAM/KILOGRAM
     Route: 042
  3. KETAMINE [Suspect]
     Active Substance: KETAMINE
     Dosage: 2 MILLIGRAM PER MILLILITRE
     Route: 065
  4. SUFENTANIL [Suspect]
     Active Substance: SUFENTANIL
     Indication: Product used for unknown indication
     Dosage: 0.1-0.2 ?G/KG
     Route: 065
  5. BACLOFEN [Suspect]
     Active Substance: BACLOFEN
     Indication: Product used for unknown indication
     Dosage: UNK
     Route: 037

REACTIONS (2)
  - Respiratory depression [Unknown]
  - Sedation complication [Unknown]
